FAERS Safety Report 13575679 (Version 1)
Quarter: 2017Q2

REPORT INFORMATION
  Report Type: Spontaneous
  Country: US (occurrence: US)
  Receive Date: 20170524
  Receipt Date: 20170524
  Transmission Date: 20170830
  Serious: Yes (Other)
  Sender: FDA-Public Use
  Company Number: US-ACCORD-048915

PATIENT
  Age: 73 Year
  Sex: Female
  Weight: 61.23 kg

DRUGS (1)
  1. QUETIAPINE. [Suspect]
     Active Substance: QUETIAPINE
     Indication: ANXIETY
     Dosage: STRENGTH: 50 MG, BEGAN THERAPY ON A FRIDAY.?DOSE OF QUETIAPINE WAS CUT BACK TO 100 MG.
     Route: 048
     Dates: start: 201604

REACTIONS (2)
  - Suicidal behaviour [Unknown]
  - Off label use [Unknown]
